FAERS Safety Report 15149176 (Version 1)
Quarter: 2018Q3

REPORT INFORMATION
  Report Type: Spontaneous
  Country: FR (occurrence: FR)
  Receive Date: 20180716
  Receipt Date: 20180716
  Transmission Date: 20181010
  Serious: Yes (Hospitalization)
  Sender: FDA-Public Use
  Company Number: PHHY2018FR045260

PATIENT
  Age: 10 Year
  Sex: Female
  Weight: 36 kg

DRUGS (1)
  1. RITALINE [Suspect]
     Active Substance: METHYLPHENIDATE HYDROCHLORIDE
     Indication: PSYCHOMOTOR HYPERACTIVITY
     Dosage: 1 DF, QD
     Route: 048
     Dates: start: 201604

REACTIONS (3)
  - Condition aggravated [Not Recovered/Not Resolved]
  - Erythromelalgia [Not Recovered/Not Resolved]
  - Livedo reticularis [Not Recovered/Not Resolved]

NARRATIVE: CASE EVENT DATE: 201604
